FAERS Safety Report 13319017 (Version 1)
Quarter: 2017Q1

REPORT INFORMATION
  Report Type: Spontaneous
  Country: US (occurrence: US)
  Receive Date: 20170309
  Receipt Date: 20170309
  Transmission Date: 20170428
  Serious: No
  Sender: FDA-Public Use
  Company Number: US-ACCORD-043218

PATIENT
  Age: 46 Year
  Sex: Female
  Weight: 58.97 kg

DRUGS (2)
  1. KEPPRA [Suspect]
     Active Substance: LEVETIRACETAM
     Indication: SEIZURE
     Dosage: STRENTH: 1000 MG
     Route: 048
     Dates: start: 201603
  2. LEVETIRACETAM ACCORD [Suspect]
     Active Substance: LEVETIRACETAM
     Indication: SEIZURE
     Dosage: STRENGTH 1000 MG

REACTIONS (1)
  - Drug screen positive [Unknown]
